FAERS Safety Report 5008646-7 (Version None)
Quarter: 2006Q2

REPORT INFORMATION
  Report Type: 
  Country: None (occurrence: None)
  Receive Date: 20060523
  Receipt Date: 20060512
  Transmission Date: 20061013
  Serious: Yes (Hospitalization)
  Sender: FDA-Public Use
  Company Number: 2004SP00081

PATIENT
  Age: 87 Year
  Sex: Female
  Weight: 60 kg

DRUGS (8)
  1. DYAZIDE [Suspect]
     Indication: DRUG USE FOR UNKNOWN INDICATION
     Route: 048
  2. XOPENEX [Suspect]
     Indication: LUNG DISORDER
     Dosage: .63MG SIX TIMES PER DAY
     Route: 055
     Dates: start: 20040406, end: 20040420
  3. TOPROL-XL [Suspect]
     Indication: DRUG USE FOR UNKNOWN INDICATION
     Route: 065
  4. BLOOD THINNER [Concomitant]
  5. ARICEPT [Concomitant]
  6. ICAPS [Concomitant]
  7. DIURETIC [Concomitant]
  8. SODIUM [Concomitant]

REACTIONS (12)
  - ABDOMINAL PAIN UPPER [None]
  - CHEST PAIN [None]
  - COUGH [None]
  - DIABETES MELLITUS [None]
  - DIARRHOEA [None]
  - HEADACHE [None]
  - ILL-DEFINED DISORDER [None]
  - INFECTION [None]
  - NAUSEA [None]
  - NERVOUSNESS [None]
  - PULMONARY EMBOLISM [None]
  - PYREXIA [None]
